FAERS Safety Report 14030022 (Version 12)
Quarter: 2019Q3

REPORT INFORMATION
  Report Type: Report from Study
  Country: TR (occurrence: TR)
  Receive Date: 20171002
  Receipt Date: 20190701
  Transmission Date: 20191004
  Serious: Yes (Hospitalization, Other)
  Sender: FDA-Public Use
  Company Number: TR-PFIZER INC-2017416699

PATIENT
  Age: 64 Year
  Sex: Female
  Weight: 87.4 kg

DRUGS (25)
  1. NEXIVOL [Concomitant]
     Active Substance: NEBIVOLOL HYDROCHLORIDE
     Dosage: UNK
     Dates: start: 20160701
  2. NOVORAPID [Concomitant]
     Active Substance: INSULIN ASPART
     Dosage: UNK
     Dates: start: 2003
  3. LANTUS [Concomitant]
     Active Substance: INSULIN GLARGINE
     Dosage: UNK
     Dates: start: 2006
  4. CORDURE [Concomitant]
  5. URIKOLIZ [Concomitant]
     Active Substance: ALLOPURINOL
     Dosage: UNK
     Dates: start: 20170731
  6. COMBIGAN [Concomitant]
     Active Substance: BRIMONIDINE TARTRATE\TIMOLOL MALEATE
  7. ALDACTAZIDE [Concomitant]
     Active Substance: HYDROCHLOROTHIAZIDE\SPIRONOLACTONE
     Dosage: UNK
     Dates: start: 20171106
  8. NEXINA [Concomitant]
     Dosage: UNK
  9. PANTO /00223901/ [Concomitant]
     Dosage: UNK
     Dates: start: 20171106
  10. CARDURA [Suspect]
     Active Substance: DOXAZOSIN MESYLATE
     Indication: ARRHYTHMIA
  11. ECOPIRIN [Concomitant]
     Active Substance: ASPIRIN
     Dosage: UNK
     Dates: start: 2006
  12. CAUMADIN [Concomitant]
     Active Substance: WARFARIN SODIUM
     Dosage: UNK
     Dates: start: 20180515
  13. PANTO /00223901/ [Concomitant]
     Dosage: UNK
     Dates: start: 20170811
  14. ADALAT [Concomitant]
     Active Substance: NIFEDIPINE
     Dosage: UNK
     Dates: start: 20150727
  15. DESAL /00032601/ [Concomitant]
     Dosage: UNK
     Dates: start: 20140522
  16. PRADAXA [Concomitant]
     Active Substance: DABIGATRAN ETEXILATE MESYLATE
     Dosage: UNK
     Dates: start: 20171025
  17. CARDURA [Suspect]
     Active Substance: DOXAZOSIN MESYLATE
     Indication: HYPERTENSION
     Dosage: 8 MG, 1X/DAY
     Route: 048
     Dates: start: 20161215
  18. CORASPIN [Concomitant]
     Active Substance: ASPIRIN
     Dosage: UNK
     Dates: start: 2006
  19. ALDACTONE [Concomitant]
     Active Substance: SPIRONOLACTONE
     Dosage: UNK
     Dates: start: 2013, end: 20170822
  20. GYNO FERRO SANOL [Concomitant]
     Dosage: UNK
     Dates: start: 20160701
  21. COUMADIN [Concomitant]
     Active Substance: WARFARIN SODIUM
     Dosage: UNK
     Dates: start: 20170811
  22. APIDRA [Concomitant]
     Active Substance: INSULIN GLULISINE
     Dosage: UNK
     Dates: start: 20170731
  23. PROGAS [Concomitant]
     Dosage: UNK
  24. DEKLARIT [Concomitant]
     Active Substance: CLARITHROMYCIN
     Dosage: UNK
  25. FERRO SANOL [Concomitant]
     Active Substance: FERROUS GLYCINE SULFATE
     Dosage: UNK
     Dates: start: 20160701

REACTIONS (10)
  - Cardiac failure [Recovered/Resolved]
  - Condition aggravated [Recovered/Resolved]
  - Pulmonary hypertension [Recovered/Resolved]
  - Condition aggravated [Recovered/Resolved]
  - Condition aggravated [Recovered/Resolved]
  - Pulmonary hypertension [Recovered/Resolved]
  - Cardiac failure [Recovered/Resolved]
  - Orthopnoea [Recovered/Resolved]
  - Cardiac failure [Unknown]
  - Condition aggravated [Unknown]

NARRATIVE: CASE EVENT DATE: 20170217
